FAERS Safety Report 22637266 (Version 1)
Quarter: 2023Q2

REPORT INFORMATION
  Report Type: Spontaneous
  Country: US (occurrence: None)
  Receive Date: 20230624
  Receipt Date: 20230624
  Transmission Date: 20230721
  Serious: Yes (Hospitalization, Disabling, Other)
  Sender: FDA-Public Use
  Company Number: None

PATIENT
  Age: 69 Day
  Sex: Female
  Weight: 34.38 kg

DRUGS (7)
  1. PRALUENT [Suspect]
     Active Substance: ALIROCUMAB
     Indication: Blood cholesterol
     Dates: start: 20210620, end: 20220620
  2. SODIUM PILLS [Concomitant]
  3. GELATINOUS WATER [Concomitant]
  4. AMOLDIPINE [Concomitant]
  5. METOPROLOL [Concomitant]
     Active Substance: METOPROLOL
  6. VITAMINS [Concomitant]
     Active Substance: VITAMINS
  7. FOLIC ACID [Concomitant]

REACTIONS (16)
  - Myalgia [None]
  - Fatigue [None]
  - Dyspnoea [None]
  - Weight decreased [None]
  - Muscle atrophy [None]
  - Crying [None]
  - Depression [None]
  - Anhedonia [None]
  - Asthenia [None]
  - Lethargy [None]
  - Libido decreased [None]
  - General physical health deterioration [None]
  - Mental disorder [None]
  - Emotional distress [None]
  - Decreased appetite [None]
  - Morbid thoughts [None]

NARRATIVE: CASE EVENT DATE: 20220920
